FAERS Safety Report 9235633 (Version 2)
Quarter: 2013Q2

REPORT INFORMATION
  Report Type: Spontaneous
  Country: US (occurrence: US)
  Receive Date: 20130417
  Receipt Date: 20130528
  Transmission Date: 20140414
  Serious: Yes (Hospitalization, Other)
  Sender: FDA-Public Use
  Company Number: US-SANOFI-AVENTIS-2013SA038285

PATIENT
  Age: 66 Year
  Sex: Male
  Weight: 90 kg

DRUGS (4)
  1. LANTUS [Suspect]
     Indication: TYPE 2 DIABETES MELLITUS
     Route: 051
     Dates: start: 2012
  2. LANTUS SOLOSTAR [Suspect]
     Indication: TYPE 2 DIABETES MELLITUS
     Dosage: STARTED 2 MONTHS AGO DOSE:32 UNIT(S)
     Route: 051
     Dates: start: 2013
  3. SOLOSTAR [Suspect]
     Indication: TYPE 2 DIABETES MELLITUS
     Dates: start: 2013
  4. HUMALOG [Concomitant]
     Dates: start: 2013

REACTIONS (6)
  - Cardiac failure congestive [Unknown]
  - Macular degeneration [Unknown]
  - Condition aggravated [Unknown]
  - Blood glucose decreased [Unknown]
  - Incorrect storage of drug [Unknown]
  - Dyspnoea [Not Recovered/Not Resolved]
